FAERS Safety Report 6370323-8 (Version None)
Quarter: 2009Q3

REPORT INFORMATION
  Report Type: 
  Country: None (occurrence: None)
  Receive Date: 20090923
  Receipt Date: 20090911
  Transmission Date: 20100115
  Serious: No
  Sender: FDA-Public Use
  Company Number: US-B.I. PHARMACEUTICALS,INC./RIDGEFIELD-2009-BP-10052BP

PATIENT
  Sex: Female

DRUGS (41)
  1. SPIRIVA [Suspect]
     Indication: CHRONIC OBSTRUCTIVE PULMONARY DISEASE
     Dosage: 18 MCG
     Route: 055
     Dates: start: 20080814
  2. SPIRIVA [Suspect]
     Indication: EMPHYSEMA
  3. PREMARIN [Concomitant]
     Indication: HORMONE REPLACEMENT THERAPY
     Dosage: 0.625 MG
     Dates: start: 20081007
  4. ASPIRIN [Concomitant]
     Dosage: 81 MG
     Dates: start: 20060717
  5. PREDNISONE [Concomitant]
  6. LISINOPRIL [Concomitant]
     Indication: HYPERTENSION
     Dosage: 40 MG
  7. ATENOLOL [Concomitant]
     Indication: HYPERTENSION
     Dosage: 50 MG
     Dates: start: 20080316
  8. BUMEX [Concomitant]
     Indication: FLUID RETENTION
     Dosage: 1 MG
     Dates: start: 20080316
  9. NEXIUM [Concomitant]
     Indication: GASTROOESOPHAGEAL REFLUX DISEASE
     Dosage: 40 MG
     Dates: start: 20070917
  10. DITROPAN XL [Concomitant]
     Indication: HYPERTONIC BLADDER
     Dosage: 5 MG
     Dates: start: 20000412
  11. TRICOR [Concomitant]
     Indication: BLOOD TRIGLYCERIDES INCREASED
     Dosage: 145 MG
     Dates: start: 20060912
  12. CITRUCEL [Concomitant]
     Indication: PROPHYLAXIS
  13. PROAIR HFA [Concomitant]
     Dates: start: 20080316
  14. ZYRTEC [Concomitant]
     Indication: MULTIPLE ALLERGIES
     Dosage: 10 MG
  15. MULTI-VITAMIN [Concomitant]
     Indication: SUPPLEMENTATION THERAPY
  16. METFORMIN HCL [Concomitant]
     Indication: DIABETES MELLITUS
     Dates: start: 20081113
  17. HYDRALAZINE HCL [Concomitant]
     Indication: HYPERTENSION
     Dates: start: 20070117
  18. DEPO-ESTRADIOL [Concomitant]
     Route: 030
  19. PREMARIN [Concomitant]
     Dates: start: 19990928
  20. PRINIVIL [Concomitant]
     Dates: start: 20061223
  21. KLOR-CON [Concomitant]
  22. IMODIUM A-D [Concomitant]
  23. TUMS EXTRA STRENGTH [Concomitant]
  24. COMPAZINE [Concomitant]
     Indication: NAUSEA
  25. SOMA [Concomitant]
     Indication: PAIN
  26. VICODIN [Concomitant]
  27. ANTIVERT [Concomitant]
     Indication: VERTIGO
  28. ELOCON [Concomitant]
     Indication: PRURITUS
  29. TESSALON [Concomitant]
     Indication: COUGH
  30. PATANOL [Concomitant]
  31. SOOTHE XP [Concomitant]
     Dates: start: 20080722
  32. CLARITIN [Concomitant]
     Indication: PRURITUS
  33. OXSORALEN-ULTRA [Concomitant]
  34. SKELAXIN [Concomitant]
     Indication: RECTAL SPASM
     Dates: start: 20071004
  35. ASCORBIC ACID [Concomitant]
  36. GLUCOSAMINE SULFATE [Concomitant]
     Dosage: 1500 MG
  37. FLEXOIL [Concomitant]
  38. CALCIUM GLUCONATE [Concomitant]
  39. FISH OIL [Concomitant]
  40. CHONDROITIN SULFATE [Concomitant]
     Dosage: 1000 MG
  41. ULTIMATE FLORA SENIOR FORMULA [Concomitant]

REACTIONS (4)
  - ERYTHEMA [None]
  - LYMPHADENOPATHY [None]
  - SWOLLEN TONGUE [None]
  - TONGUE DISCOLOURATION [None]
